FAERS Safety Report 7048984-X (Version None)
Quarter: 2010Q4

REPORT INFORMATION
  Report Type: 
  Country: None (occurrence: None)
  Receive Date: 20101018
  Receipt Date: 20101004
  Transmission Date: 20110411
  Serious: Yes (Hospitalization, Other)
  Sender: FDA-Public Use
  Company Number: PHHY2010JP51922

PATIENT
  Sex: Female

DRUGS (4)
  1. DIOVAN [Suspect]
     Indication: HYPERTENSION
     Dosage: 40 MG, QD
     Route: 048
     Dates: start: 20100123, end: 20100622
  2. MERCAZOLE [Suspect]
     Indication: HYPERTHYROIDISM
     Dosage: 30 MG, DAILY
     Route: 048
     Dates: start: 20100602, end: 20100623
  3. NORVASC [Concomitant]
     Indication: HYPERTENSION
     Dosage: 5 MG, UNK
     Route: 048
     Dates: start: 20000519, end: 20100622
  4. MAINTATE [Concomitant]
     Indication: HYPERTENSION
     Dosage: 5 MG, UNK
     Route: 048
     Dates: start: 20100602

REACTIONS (6)
  - BACK PAIN [None]
  - BASEDOW'S DISEASE [None]
  - CONDITION AGGRAVATED [None]
  - DYSPNOEA [None]
  - HEPATIC FUNCTION ABNORMAL [None]
  - WEIGHT DECREASED [None]
